FAERS Safety Report 13905747 (Version 6)
Quarter: 2022Q3

REPORT INFORMATION
  Report Type: Spontaneous
  Country: FR (occurrence: FR)
  Receive Date: 20170825
  Receipt Date: 20220715
  Transmission Date: 20221027
  Serious: Yes (Death, Congenital Anomaly, Other)
  Sender: FDA-Public Use
  Company Number: FR-VIIV HEALTHCARE LIMITED-FR2017GSK130598

PATIENT

DRUGS (12)
  1. TRIUMEQ [Suspect]
     Active Substance: ABACAVIR SULFATE\DOLUTEGRAVIR SODIUM\LAMIVUDINE
     Indication: HIV infection
     Dosage: 1 DF, QD
     Route: 064
     Dates: start: 201604, end: 20170517
  2. KIVEXA [Suspect]
     Active Substance: ABACAVIR SULFATE\LAMIVUDINE
     Indication: HIV infection
     Dosage: UNK
     Route: 064
     Dates: start: 20170517
  3. ISENTRESS [Suspect]
     Active Substance: RALTEGRAVIR POTASSIUM
     Indication: HIV infection
     Dosage: UNK
     Route: 064
     Dates: start: 20170517
  4. ZIDOVUDINE [Concomitant]
     Active Substance: ZIDOVUDINE
     Indication: Product used for unknown indication
     Dosage: UNK
     Route: 042
     Dates: start: 201706
  5. TRANDATE [Concomitant]
     Active Substance: LABETALOL HYDROCHLORIDE
     Indication: Product used for unknown indication
     Dosage: UNK
     Route: 064
  6. TRANDATE [Concomitant]
     Active Substance: LABETALOL HYDROCHLORIDE
     Dosage: UNK
     Route: 064
  7. TRANDATE [Concomitant]
     Active Substance: LABETALOL HYDROCHLORIDE
     Dosage: UNK
     Route: 064
  8. TRANDATE [Concomitant]
     Active Substance: LABETALOL HYDROCHLORIDE
     Dosage: UNK
     Route: 064
  9. CELESTENE [Concomitant]
     Indication: Product used for unknown indication
     Dosage: UNK
     Route: 064
  10. CELESTENE [Concomitant]
     Dosage: UNK
     Route: 064
  11. CELESTENE [Concomitant]
     Dosage: UNK
     Route: 064
  12. CELESTENE [Concomitant]
     Dosage: UNK
     Route: 064

REACTIONS (8)
  - Cardiac failure [Fatal]
  - Low birth weight baby [Fatal]
  - Patent ductus arteriosus [Recovering/Resolving]
  - Premature baby [Unknown]
  - Foetal growth restriction [Unknown]
  - Amniotic fluid index decreased [Unknown]
  - Seizure [Unknown]
  - Foetal exposure during pregnancy [Unknown]

NARRATIVE: CASE EVENT DATE: 20170107
